FAERS Safety Report 9238659 (Version 1)
Quarter: 2013Q2

REPORT INFORMATION
  Report Type: Spontaneous
  Country: US (occurrence: None)
  Receive Date: 20130417
  Receipt Date: 20130417
  Transmission Date: 20140414
  Serious: Yes (Disabling, Other)
  Sender: FDA-Public Use
  Company Number: None

PATIENT
  Age: 32 Year
  Sex: Female
  Weight: 81.65 kg

DRUGS (3)
  1. LO/OVRAL [Suspect]
     Indication: CONTRACEPTION
     Dates: start: 20070508, end: 20070629
  2. LO/OVRAL [Suspect]
     Indication: CONTRACEPTION
     Dates: start: 20070508, end: 20070629
  3. KEPPRA [Concomitant]

REACTIONS (6)
  - Convulsion [None]
  - Glossodynia [None]
  - Aphthous stomatitis [None]
  - Meniscus injury [None]
  - Presyncope [None]
  - Nerve compression [None]
